FAERS Safety Report 4835625-2 (Version None)
Quarter: 2005Q4

REPORT INFORMATION
  Report Type: 
  Country: None (occurrence: None)
  Receive Date: 20051121
  Receipt Date: 20051107
  Transmission Date: 20060501
  Serious: Yes (Hospitalization)
  Sender: FDA-Public Use
  Company Number: 2005BI020390

PATIENT
  Age: 63 Year
  Sex: Female

DRUGS (2)
  1. AMEVIVE [Suspect]
     Indication: PSORIASIS
     Dosage: 15 MG; QW; IM
     Route: 030
     Dates: start: 20051027
  2. COUMADIN [Concomitant]

REACTIONS (3)
  - FALL [None]
  - HEADACHE [None]
  - SUBDURAL HAEMATOMA [None]
